FAERS Safety Report 4878196-7 (Version None)
Quarter: 2005Q4

REPORT INFORMATION
  Report Type: 
  Country: None (occurrence: None)
  Receive Date: 20051209
  Receipt Date: 20050606
  Transmission Date: 20060501
  Serious: Yes (Death, Other)
  Sender: FDA-Public Use
  Company Number: USA-2004-0015511

PATIENT
  Age: 46 Year
  Sex: Female

DRUGS (7)
  1. OXYCONTIN [Suspect]
     Indication: PAIN
     Dosage: 80 MG, Q12H
  2. DIAZEPAM [Suspect]
  3. ATROPINE [Suspect]
  4. NICOTINE [Suspect]
  5. SOMA [Concomitant]
  6. XANAX [Concomitant]
  7. PERCOCET [Concomitant]

REACTIONS (5)
  - ACCIDENT AT HOME [None]
  - DRUG ABUSER [None]
  - FALL [None]
  - HYPOTENSION [None]
  - MULTIPLE DRUG OVERDOSE ACCIDENTAL [None]
